FAERS Safety Report 4367049-9 (Version None)
Quarter: 2004Q2

REPORT INFORMATION
  Report Type: 
  Country: None (occurrence: None)
  Receive Date: 20040528
  Receipt Date: 20040524
  Transmission Date: 20050107
  Serious: Yes (Other)
  Sender: FDA-Public Use
  Company Number: AU-JNJFOC-20040205705

PATIENT
  Age: 75 Year
  Sex: Female

DRUGS (4)
  1. RISPERDAL [Suspect]
     Indication: SCHIZOPHRENIA
     Route: 049
  2. TRAMAL SR [Concomitant]
     Dosage: 100 GM DAILY (THE PATIENT HAS BEEN ON TRAMADOL HYDROCHLORIDE FOR A FEW MONTHS)
     Route: 049
  3. NORVASC [Concomitant]
     Route: 049
  4. ZYPREXA [Concomitant]
     Dosage: 10 MG AT NIGHT
     Route: 049

REACTIONS (3)
  - MUSCLE DISORDER [None]
  - PHARMACEUTICAL PRODUCT COMPLAINT [None]
  - SWELLING FACE [None]
